FAERS Safety Report 25819665 (Version 1)
Quarter: 2025Q3

REPORT INFORMATION
  Report Type: Spontaneous
  Country: CL (occurrence: CL)
  Receive Date: 20250918
  Receipt Date: 20250918
  Transmission Date: 20251020
  Serious: Yes (Hospitalization)
  Sender: MERCK SHARP & DOHME LLC
  Company Number: CL-BNTAG-010960

PATIENT
  Age: 79 Year
  Sex: Female
  Weight: 56.5 kg

DRUGS (8)
  1. PEMBROLIZUMAB [Suspect]
     Active Substance: PEMBROLIZUMAB
     Indication: Squamous cell carcinoma of head and neck
     Dosage: EVERY 3 WEEKS; 200 MG, TOTAL
     Route: 042
     Dates: start: 20241122, end: 20250622
  2. PEMBROLIZUMAB [Suspect]
     Active Substance: PEMBROLIZUMAB
     Indication: Squamous cell carcinoma of head and neck
     Dosage: EVERY 3 WEEKS; 200 MG, TOTAL
     Route: 042
     Dates: start: 20250622, end: 20250622
  3. ENALAPRIL [Concomitant]
     Active Substance: ENALAPRIL
     Indication: Hypertension
     Dosage: 10 MG OD
     Dates: start: 20040114
  4. ONDANSETRON [Concomitant]
     Active Substance: ONDANSETRON
     Indication: Nausea
     Dates: start: 20250607
  5. Hydrocortisone 0,5% [Concomitant]
     Indication: Prophylaxis
     Route: 048
     Dates: start: 20250507
  6. Nystatin 10 million IU [Concomitant]
     Indication: Prophylaxis
     Dates: start: 20250507
  7. LIDOCAINE [Concomitant]
     Active Substance: LIDOCAINE
     Indication: Prophylaxis
     Dates: start: 20250507
  8. Sodium Bicarbonate 1% [Concomitant]
     Indication: Prophylaxis
     Dates: start: 20250507

REACTIONS (2)
  - Stomatitis [Recovered/Resolved]
  - Medical device site infection [Recovered/Resolved]

NARRATIVE: CASE EVENT DATE: 20250717
